FAERS Safety Report 4303901-8 (Version None)
Quarter: 2004Q1

REPORT INFORMATION
  Report Type: 
  Country: None (occurrence: None)
  Receive Date: 20040225
  Receipt Date: 20040220
  Transmission Date: 20041129
  Serious: Yes (Hospitalization)
  Sender: FDA-Public Use
  Company Number: WAES 0402USA01583

PATIENT
  Age: 73 Year
  Sex: Male

DRUGS (1)
  1. PRINIVIL [Suspect]
     Route: 048

REACTIONS (6)
  - BETA 2 MICROGLOBULIN INCREASED [None]
  - GAMMA-GLUTAMYLTRANSFERASE INCREASED [None]
  - MYELODYSPLASTIC SYNDROME [None]
  - RENAL CYST [None]
  - RENAL FAILURE [None]
  - SPLENOMEGALY [None]
